FAERS Safety Report 8585762-4 (Version None)
Quarter: 2012Q3

REPORT INFORMATION
  Report Type: 
  Country: None (occurrence: None)
  Receive Date: 20120810
  Receipt Date: 20120727
  Transmission Date: 20120928
  Serious: Yes (Death, Hospitalization, Other)
  Sender: FDA-Public Use
  Company Number: US-BAYER-2012-076181

PATIENT
  Age: 67 Year
  Sex: Male
  Weight: 88.98 kg

DRUGS (10)
  1. FLUZONE [Concomitant]
     Indication: INFLUENZA IMMUNISATION
     Dosage: 1 DF, UNK
     Route: 058
     Dates: start: 20111005, end: 20111005
  2. POTASSIUM CHLORIDE [Concomitant]
     Indication: SUPPLEMENTATION THERAPY
     Dosage: 20 MEQ, QD
     Dates: end: 20111105
  3. LASIX [Concomitant]
     Indication: HYPERTENSION
     Dosage: UNK
     Dates: end: 20111105
  4. BENZONATATE [Concomitant]
     Indication: COUGH
     Dosage: UNK
     Dates: end: 20111105
  5. ZOCOR [Concomitant]
     Indication: HYPERLIPIDAEMIA
     Dosage: 40 MG, QD
     Dates: end: 20111105
  6. OTHER ANTINEOPLASTIC AGENTS [Suspect]
     Indication: NON-SMALL CELL LUNG CANCER
     Dosage: 250 MG, BID
     Dates: start: 20110603, end: 20111024
  7. LEVOTHYROXINE SODIUM [Concomitant]
     Indication: HYPOTHYROIDISM
     Dosage: 50 ?G, QD
     Dates: end: 20111105
  8. ASPIRIN [Suspect]
     Indication: ISCHAEMIC HEART DISEASE PROPHYLAXIS
     Dosage: UNK
     Dates: end: 20111105
  9. ZETIA [Concomitant]
     Indication: HYPERLIPIDAEMIA
     Dosage: 10 MG, QD
     Dates: end: 20111105
  10. COREG [Concomitant]
     Indication: HYPERTENSION
     Dosage: UNK
     Dates: end: 20111010

REACTIONS (18)
  - OEDEMA PERIPHERAL [None]
  - NAUSEA [None]
  - WEIGHT DECREASED [None]
  - ABDOMINAL PAIN [None]
  - TOXIC NEUROPATHY [None]
  - GAIT DISTURBANCE [None]
  - LOCALISED OEDEMA [None]
  - DYSPNOEA [None]
  - ORTHOSTATIC HYPOTENSION [None]
  - ILEUS [None]
  - FALL [None]
  - DIZZINESS [None]
  - FATIGUE [None]
  - DEATH [None]
  - LOSS OF CONSCIOUSNESS [None]
  - CONSTIPATION [None]
  - SYNCOPE [None]
  - DIZZINESS POSTURAL [None]
